FAERS Safety Report 9843597 (Version 1)
Quarter: 2013Q4

REPORT INFORMATION
  Report Type: Spontaneous
  Country: US (occurrence: None)
  Receive Date: 20131219
  Receipt Date: 20131219
  Transmission Date: 20140711
  Serious: Yes (Hospitalization)
  Sender: FDA-Public Use
  Company Number: 163-20785-13030745

PATIENT
  Age: 55 Year
  Sex: Female

DRUGS (20)
  1. THALOMID (THALIDOMIDE) (CAPSULES) [Suspect]
     Indication: PLASMA CELL MYELOMA
     Dosage: 100 MG, 1 IN 1 D, PO
     Route: 048
     Dates: start: 201208
  2. PROGRAF (TACROLIMUS) [Concomitant]
  3. CELLCEPT (MYCOPHENOLATE MOFETIL) [Concomitant]
  4. PREDNISONE (PREDNISONE) [Concomitant]
  5. OSCAL WITH VITAMIN D (OS-CAL) [Concomitant]
  6. MULTIVITAMINS (MULTIVITAMINS) [Concomitant]
  7. PROTONIX [Concomitant]
  8. ASPIRIN (ACETYLSALICYLIC ACID) [Concomitant]
  9. ASCORBIC ACID (ASCORBIC ACID) [Concomitant]
  10. IRON (IRON) [Concomitant]
  11. VITAMIN D3 (COLECALCIFEROL) [Concomitant]
  12. PRAVASTATIN (PRAVASTATIN) [Concomitant]
  13. SYNTHROID (LEVOTHYROXINE SODIUM) [Concomitant]
  14. EFFEXOR (VENLAFAXINE HYDROCHLORIDE) [Concomitant]
  15. STOOL SOFTENER (DOCUSATE SODIUM [Concomitant]
  16. MAGNESIUM OXIDE (MAGNESIUM OXIDE) [Concomitant]
  17. VELCASE (BORTEZOMIB) [Concomitant]
  18. DEXAMETHASONE (DEXAMETHASONE) [Concomitant]
  19. TACROLIMUS (TACROLIMUS) [Concomitant]
  20. VALCYTE (VALGANCICLOVIR HYDROCHLORIDE) [Concomitant]

REACTIONS (3)
  - Pyrexia [None]
  - Pneumonia [None]
  - Herpes zoster [None]
